FAERS Safety Report 23810117 (Version 1)
Quarter: 2024Q2

REPORT INFORMATION
  Report Type: Spontaneous
  Country: IT (occurrence: IT)
  Receive Date: 20240502
  Receipt Date: 20240502
  Transmission Date: 20240716
  Serious: Yes (Hospitalization)
  Sender: FDA-Public Use
  Company Number: None

PATIENT
  Age: 57 Year
  Sex: Female
  Weight: 67 kg

DRUGS (1)
  1. TRASTUZUMAB DERUXTECAN [Suspect]
     Active Substance: TRASTUZUMAB DERUXTECAN
     Indication: Hormone receptor positive breast cancer
     Dosage: 5.4 MG/KG
     Route: 042
     Dates: start: 20240322

REACTIONS (3)
  - Cholestasis [Unknown]
  - Jaundice [Recovering/Resolving]
  - Liver function test abnormal [Unknown]

NARRATIVE: CASE EVENT DATE: 20240416
